FAERS Safety Report 12720420 (Version 4)
Quarter: 2016Q4

REPORT INFORMATION
  Report Type: Spontaneous
  Country: JP (occurrence: JP)
  Receive Date: 20160907
  Receipt Date: 20161214
  Transmission Date: 20170207
  Serious: Yes (Other)
  Sender: FDA-Public Use
  Company Number: JP-ROCHE-1825723

PATIENT
  Age: 78 Year
  Sex: Male

DRUGS (2)
  1. BONVIVA [Suspect]
     Active Substance: IBANDRONATE SODIUM
     Indication: OSTEOPOROSIS
     Route: 042
     Dates: start: 201410, end: 201505
  2. BENET [Suspect]
     Active Substance: RISEDRONATE SODIUM
     Indication: OSTEOPOROSIS
     Dosage: DATE IF MOST RECENT DOSE: SEP/2014
     Route: 048
     Dates: start: 2010

REACTIONS (2)
  - Sinusitis [Unknown]
  - Osteonecrosis of jaw [Not Recovered/Not Resolved]
